FAERS Safety Report 13732757 (Version 2)
Quarter: 2017Q3

REPORT INFORMATION
  Report Type: Spontaneous
  Country: US (occurrence: US)
  Receive Date: 20170707
  Receipt Date: 20170712
  Transmission Date: 20171127
  Serious: Yes (Other)
  Sender: FDA-Public Use
  Company Number: US-BRISTOL-MYERS SQUIBB COMPANY-BMS-2017-058489

PATIENT
  Sex: Male
  Weight: 111.1 kg

DRUGS (2)
  1. YERVOY [Suspect]
     Active Substance: IPILIMUMAB
     Indication: METASTATIC MALIGNANT MELANOMA
     Dosage: 325 MG, Q3WK
     Route: 042
  2. OPDIVO [Suspect]
     Active Substance: NIVOLUMAB
     Indication: METASTATIC MALIGNANT MELANOMA
     Route: 042

REACTIONS (7)
  - Malignant neoplasm progression [Unknown]
  - Rash [Not Recovered/Not Resolved]
  - Neoplasm [Recovering/Resolving]
  - Pyrexia [Unknown]
  - Psychomotor hyperactivity [Unknown]
  - Blister [Recovering/Resolving]
  - Insomnia [Unknown]
